FAERS Safety Report 21370057 (Version 2)
Quarter: 2022Q4

REPORT INFORMATION
  Report Type: Report from Study
  Country: DE (occurrence: DE)
  Receive Date: 20220923
  Receipt Date: 20221114
  Transmission Date: 20230112
  Serious: Yes (Hospitalization)
  Sender: FDA-Public Use
  Company Number: DE-ABBVIE-4129078

PATIENT
  Age: 37 Year
  Sex: Male

DRUGS (5)
  1. SKYRIZI [Suspect]
     Active Substance: RISANKIZUMAB-RZAA
     Indication: Psoriasis
     Route: 058
     Dates: start: 20190807
  2. SKYRIZI [Suspect]
     Active Substance: RISANKIZUMAB-RZAA
     Route: 058
     Dates: start: 20190712, end: 20190807
  3. Fucidine [Concomitant]
     Indication: Staphylococcal impetigo
     Dosage: FORM STRENGTH: 20 MILLIGRAM?TOPIC / SKIN / DERMAL SPRAY.
     Dates: start: 20190808, end: 20191011
  4. Octenisan [Concomitant]
     Indication: Staphylococcal impetigo
     Dosage: FORM STRENGTH: 500 MILLIGRAM?WASHLOTION; TOPIC / SKIN / DERMAL SPRAY.
     Route: 065
     Dates: start: 20190808, end: 20191011
  5. IMUPRET [Concomitant]
     Indication: Nasopharyngitis
     Dosage: 6 DRAGEE DAILY
     Route: 048
     Dates: start: 20191031

REACTIONS (3)
  - Haemorrhoids [Recovered/Resolved]
  - Rectal haemorrhage [Recovered/Resolved]
  - Anorectal discomfort [Recovered/Resolved]

NARRATIVE: CASE EVENT DATE: 20220520
